FAERS Safety Report 4415311-3 (Version None)
Quarter: 2004Q3

REPORT INFORMATION
  Report Type: 
  Country: None (occurrence: None)
  Receive Date: 20040730
  Receipt Date: 20040716
  Transmission Date: 20050211
  Serious: Yes (Hospitalization)
  Sender: FDA-Public Use
  Company Number: L04-NLD-03182-03

PATIENT
  Age: 31 Year
  Sex: Female

DRUGS (1)
  1. PROPESS (DINOPROSTONE) [Suspect]
     Indication: INDUCED LABOUR
     Dosage: 10 MG ONCE VG
     Route: 067

REACTIONS (5)
  - ABNORMAL LABOUR [None]
  - CAESAREAN SECTION [None]
  - DRUG EXPOSURE DURING PREGNANCY [None]
  - FOETAL HEART RATE DECELERATION [None]
  - PLACENTAL INSUFFICIENCY [None]
